FAERS Safety Report 10573331 (Version 2)
Quarter: 2016Q1

REPORT INFORMATION
  Report Type: Spontaneous
  Country: US (occurrence: US)
  Receive Date: 20141110
  Receipt Date: 20160301
  Transmission Date: 20160525
  Serious: Yes (Hospitalization, Other)
  Sender: FDA-Public Use
  Company Number: US-BAYER-2014-164732

PATIENT
  Age: 28 Year
  Sex: Female
  Weight: 83.45 kg

DRUGS (1)
  1. MIRENA [Suspect]
     Active Substance: LEVONORGESTREL
     Indication: CONTRACEPTION
     Dosage: 20 MCG/24HR, CONT
     Route: 015
     Dates: start: 20090324, end: 20100712

REACTIONS (10)
  - Medical device pain [None]
  - Scar [None]
  - Emotional distress [None]
  - Medical device discomfort [None]
  - Procedural pain [None]
  - Injury [None]
  - Embedded device [None]
  - Pain [None]
  - Device failure [None]
  - Depression [None]

NARRATIVE: CASE EVENT DATE: 201007
